FAERS Safety Report 19731710 (Version 1)
Quarter: 2021Q3

REPORT INFORMATION
  Report Type: Report from Study
  Country: US (occurrence: US)
  Receive Date: 20210820
  Receipt Date: 20210820
  Transmission Date: 20211014
  Serious: Yes (Other)
  Sender: FDA-Public Use
  Company Number: US-JAZZ-2021-US-015083

PATIENT
  Sex: Female

DRUGS (1)
  1. LURBINECTEDIN [Suspect]
     Active Substance: LURBINECTEDIN
     Indication: SMALL CELL LUNG CANCER
     Dosage: 2 CYCLES
     Dates: start: 2021

REACTIONS (14)
  - Swollen tongue [Unknown]
  - Abdominal pain [Unknown]
  - Lethargy [Unknown]
  - Nausea [Unknown]
  - Deafness unilateral [Unknown]
  - Dizziness [Unknown]
  - Productive cough [Unknown]
  - Decreased appetite [Unknown]
  - Headache [Unknown]
  - Dysgeusia [Unknown]
  - Depression [Unknown]
  - Retching [Unknown]
  - Diarrhoea [Unknown]
  - Constipation [Unknown]
